FAERS Safety Report 8197011-X (Version None)
Quarter: 2012Q1

REPORT INFORMATION
  Report Type: 
  Country: None (occurrence: None)
  Receive Date: 20120227
  Receipt Date: 20111108
  Transmission Date: 20120608
  Serious: Yes (Other)
  Sender: FDA-Public Use
  Company Number: 338983

PATIENT
  Age: 41 Year
  Sex: Female
  Weight: 91.6 kg

DRUGS (1)
  1. VICTOZA [Suspect]
     Indication: TYPE 1 DIABETES MELLITUS
     Dosage: 1.8 MG, QD, SUBCUTANEOUS
     Route: 058
     Dates: start: 20110401, end: 20111102

REACTIONS (6)
  - NAUSEA [None]
  - GLYCOSYLATED HAEMOGLOBIN INCREASED [None]
  - PANCREATITIS ACUTE [None]
  - DEHYDRATION [None]
  - VOMITING [None]
  - BLOOD GLUCOSE ABNORMAL [None]
